FAERS Safety Report 7464970-X (Version None)
Quarter: 2011Q2

REPORT INFORMATION
  Report Type: 
  Country: None (occurrence: None)
  Receive Date: 20110509
  Receipt Date: 20110427
  Transmission Date: 20111010
  Serious: Yes (Other)
  Sender: FDA-Public Use
  Company Number: US-JNJFOC-20110500176

PATIENT
  Sex: Male

DRUGS (3)
  1. FENTANYL [Suspect]
     Route: 062
  2. FENTANYL [Suspect]
     Indication: PAIN
     Route: 062
  3. OXYCONTIN [Suspect]
     Indication: PAIN
     Route: 048

REACTIONS (6)
  - SJOGREN'S SYNDROME [None]
  - WEIGHT DECREASED [None]
  - WITHDRAWAL SYNDROME [None]
  - SKIN ULCER [None]
  - EUPHORIC MOOD [None]
  - BODY HEIGHT DECREASED [None]
